FAERS Safety Report 14143668 (Version 1)
Quarter: 2017Q4

REPORT INFORMATION
  Report Type: Spontaneous
  Country: DE (occurrence: DE)
  Receive Date: 20171031
  Receipt Date: 20171031
  Transmission Date: 20180321
  Serious: Yes (Death, Hospitalization)
  Sender: FDA-Public Use
  Company Number: DE-ROCHE-1998715

PATIENT
  Age: 69 Year
  Sex: Female
  Weight: 60 kg

DRUGS (9)
  1. AVASTIN [Suspect]
     Active Substance: BEVACIZUMAB
     Indication: COLON CANCER
     Dosage: 100 ML NACL 0.9 %
     Route: 042
     Dates: start: 201706
  2. FENTANYL. [Concomitant]
     Active Substance: FENTANYL
     Dosage: EVERY 3 DAYS
     Route: 065
     Dates: start: 20170905
  3. TILIDIN [Concomitant]
     Active Substance: NALOXONE HYDROCHLORIDE\TILIDINE HYDROCHLORIDE
     Dosage: 2-0-1, 50/4 MG
     Route: 065
  4. NOVALGIN [Concomitant]
     Active Substance: METAMIZOLE SODIUM
     Route: 065
  5. ARCOXIA [Concomitant]
     Active Substance: ETORICOXIB
     Dosage: 1-0-1
     Route: 065
  6. DEXAMETHASON [Suspect]
     Active Substance: DEXAMETHASONE
     Indication: COLON CANCER
     Dosage: 32MG/TAG
     Route: 065
  7. PANTOZOL [Concomitant]
     Active Substance: PANTOPRAZOLE SODIUM
     Dosage: 1-0-0
     Route: 065
  8. XELODA [Concomitant]
     Active Substance: CAPECITABINE
     Indication: COLON CANCER
     Route: 065
  9. TARGIN [Concomitant]
     Active Substance: NALOXONE HYDROCHLORIDE\OXYCODONE HYDROCHLORIDE
     Dosage: 0-0-1 10/5
     Route: 065

REACTIONS (5)
  - Ileus [Fatal]
  - Condition aggravated [Unknown]
  - Anastomotic complication [Fatal]
  - Intestinal perforation [Fatal]
  - Urinary tract obstruction [Fatal]

NARRATIVE: CASE EVENT DATE: 20170801
